FAERS Safety Report 11719381 (Version 1)
Quarter: 2015Q4

REPORT INFORMATION
  Report Type: Spontaneous
  Country: MA (occurrence: MA)
  Receive Date: 20151110
  Receipt Date: 20151110
  Transmission Date: 20160304
  Serious: Yes (Other)
  Sender: FDA-Public Use
  Company Number: MA-MYLANLABS-2015M1038381

PATIENT

DRUGS (1)
  1. METHOTREXATE [Suspect]
     Active Substance: METHOTREXATE
     Indication: ACUTE LYMPHOCYTIC LEUKAEMIA
     Dosage: 5G
     Route: 065

REACTIONS (8)
  - Renal failure [Recovering/Resolving]
  - Melanoderma [Recovering/Resolving]
  - Colitis [Recovering/Resolving]
  - Aplasia [Recovering/Resolving]
  - Mucosal inflammation [Recovering/Resolving]
  - Hepatosplenomegaly [Recovering/Resolving]
  - Hepatocellular injury [Recovering/Resolving]
  - Toxicity to various agents [Recovering/Resolving]
